FAERS Safety Report 21372008 (Version 2)
Quarter: 2022Q4

REPORT INFORMATION
  Report Type: Spontaneous
  Country: GB (occurrence: GB)
  Receive Date: 20220923
  Receipt Date: 20221006
  Transmission Date: 20230112
  Serious: Yes (Other)
  Sender: FDA-Public Use
  Company Number: GB-ROCHE-3174122

PATIENT
  Sex: Male

DRUGS (20)
  1. LENALIDOMIDE [Suspect]
     Active Substance: LENALIDOMIDE
     Indication: Follicular lymphoma
     Route: 065
     Dates: start: 20140801, end: 20160104
  2. LENALIDOMIDE [Suspect]
     Active Substance: LENALIDOMIDE
     Dosage: RITUXIMAB-LENALIDOMIDE WAS GIVEN
     Route: 065
     Dates: start: 20210908, end: 20211208
  3. LENALIDOMIDE [Suspect]
     Active Substance: LENALIDOMIDE
     Dosage: IT WAS GIVEN IN VARLILUMAB-RITUXIMAB IN THE RIVA STUDY
     Route: 065
     Dates: start: 20201101, end: 20210101
  4. UNSPECIFIED INGREDIENT [Suspect]
     Active Substance: UNSPECIFIED INGREDIENT
     Indication: Follicular lymphoma
     Route: 065
     Dates: start: 20200501, end: 20200501
  5. RITUXIMAB [Suspect]
     Active Substance: RITUXIMAB
     Indication: Follicular lymphoma
     Route: 065
     Dates: start: 20200107, end: 20200501
  6. RITUXIMAB [Suspect]
     Active Substance: RITUXIMAB
     Route: 065
     Dates: start: 20140801
  7. RITUXIMAB [Suspect]
     Active Substance: RITUXIMAB
     Dosage: GIVEN WITH VARLILUMAB-RITUXIMAB
     Route: 065
     Dates: start: 20201101, end: 20210101
  8. RITUXIMAB [Suspect]
     Active Substance: RITUXIMAB
     Dosage: RITUXIMAB-LENALIDOMIDE WAS GIVEN
     Route: 065
     Dates: start: 20210908, end: 20211208
  9. RITUXIMAB [Suspect]
     Active Substance: RITUXIMAB
     Dosage: IT WAS GIVEN BEAM CONSOLIDATION/CONDITIONING FOLLOWING R-CHOP
     Route: 065
     Dates: start: 20200107, end: 20200501
  10. BENDAMUSTINE [Suspect]
     Active Substance: BENDAMUSTINE
     Indication: Follicular lymphoma
     Dosage: IT WAS GIVEN BEAM CONSOLIDATION/CONDITIONING FOLLOWING R-CHOP
     Route: 065
     Dates: start: 20200107, end: 20200501
  11. CYCLOPHOSPHAMIDE [Suspect]
     Active Substance: CYCLOPHOSPHAMIDE
     Indication: Follicular lymphoma
     Dosage: IT WAS GIVEN BEAM CONSOLIDATION/CONDITIONING FOLLOWING R-CHOP
     Route: 065
     Dates: start: 20200107, end: 20200501
  12. CYCLOPHOSPHAMIDE [Suspect]
     Active Substance: CYCLOPHOSPHAMIDE
     Route: 065
     Dates: start: 20170323
  13. DOXORUBICIN HYDROCHLORIDE [Suspect]
     Active Substance: DOXORUBICIN HYDROCHLORIDE
     Indication: Follicular lymphoma
     Dosage: IT WAS GIVEN BEAM CONSOLIDATION/CONDITIONING FOLLOWING R-CHOP
     Route: 065
     Dates: start: 20200107, end: 20200501
  14. VINCRISTINE SULFATE [Suspect]
     Active Substance: VINCRISTINE SULFATE
     Indication: Follicular lymphoma
     Route: 065
     Dates: start: 20140801, end: 20160104
  15. PREDNISONE [Suspect]
     Active Substance: PREDNISONE
     Indication: Follicular lymphoma
     Route: 065
     Dates: start: 20170323, end: 20170701
  16. PREDNISONE [Suspect]
     Active Substance: PREDNISONE
     Dosage: IT WAS GIVEN BEAM CONSOLIDATION/CONDITIONING FOLLOWING R-CHOP
     Route: 065
     Dates: start: 20200107, end: 20200501
  17. VARLILUMAB [Suspect]
     Active Substance: VARLILUMAB
     Indication: Follicular lymphoma
     Route: 065
     Dates: start: 20170323, end: 20170701
  18. VARLILUMAB [Suspect]
     Active Substance: VARLILUMAB
     Dosage: GIVEN WITH VARLILUMAB-RITUXIMAB
     Route: 065
     Dates: start: 20201101, end: 20210101
  19. VARLILUMAB [Suspect]
     Active Substance: VARLILUMAB
     Dosage: GIVEN IN VARLILUMAB-RITUXIMAB
     Route: 065
     Dates: start: 20201101, end: 20210101
  20. VARLILUMAB [Suspect]
     Active Substance: VARLILUMAB
     Dosage: IT WAS GIVEN BEAM CONSOLIDATION/CONDITIONING FOLLOWING R-CHOP
     Route: 065
     Dates: start: 20200107, end: 20200501

REACTIONS (6)
  - Neutropenic sepsis [Unknown]
  - Bacterial infection [Unknown]
  - Viral infection [Unknown]
  - Fungal infection [Unknown]
  - Malignant neoplasm progression [Unknown]
  - Pancytopenia [Unknown]
